FAERS Safety Report 17722512 (Version 5)
Quarter: 2020Q2

REPORT INFORMATION
  Report Type: Spontaneous
  Country: US (occurrence: US)
  Receive Date: 20200429
  Receipt Date: 20200508
  Transmission Date: 20200714
  Serious: No
  Sender: FDA-Public Use
  Company Number: US-PFIZER INC-2020172143

PATIENT
  Age: 67 Year
  Sex: Male
  Weight: 70.31 kg

DRUGS (2)
  1. DILANTIN [Suspect]
     Active Substance: PHENYTOIN
     Indication: SEIZURE
     Dosage: 100 MG 2 CAPSULES, TWICE A DAY
     Route: 048
  2. DILANTIN [Suspect]
     Active Substance: PHENYTOIN
     Indication: EPILEPSY

REACTIONS (5)
  - Exercise lack of [Unknown]
  - Confusional state [Unknown]
  - Disturbance in attention [Unknown]
  - Thinking abnormal [Unknown]
  - Hypoacusis [Unknown]

NARRATIVE: CASE EVENT DATE: 2019
